FAERS Safety Report 15238999 (Version 1)
Quarter: 2018Q3

REPORT INFORMATION
  Report Type: Spontaneous
  Country: FR (occurrence: FR)
  Receive Date: 20180803
  Receipt Date: 20180803
  Transmission Date: 20181010
  Serious: Yes (Hospitalization, Other)
  Sender: FDA-Public Use
  Company Number: FR-SA-2018SA061160

PATIENT
  Age: 32 Year
  Sex: Male

DRUGS (4)
  1. CHAMPIX [Suspect]
     Active Substance: VARENICLINE TARTRATE
     Indication: EX-TOBACCO USER
     Dosage: UNK UNK,UNK
     Route: 048
     Dates: start: 201708, end: 20171018
  2. PANTOPRAZOLE [Suspect]
     Active Substance: PANTOPRAZOLE
     Indication: HAEMATEMESIS
     Dosage: UNK UNK,UNK
     Route: 048
     Dates: start: 20171001, end: 20171015
  3. GAVISCON [Suspect]
     Active Substance: ALUMINUM HYDROXIDE\MAGNESIUM CARBONATE
     Indication: HAEMATEMESIS
     Dosage: UNK UNK,UNK
     Route: 048
     Dates: start: 20171001, end: 20171015
  4. IBUPROFEN. [Suspect]
     Active Substance: IBUPROFEN
     Indication: HEADACHE
     Dosage: UNK UNK,UNK
     Route: 048

REACTIONS (2)
  - Contraindicated product administered [Unknown]
  - Toxic epidermal necrolysis [Recovered/Resolved with Sequelae]

NARRATIVE: CASE EVENT DATE: 20171023
